FAERS Safety Report 5397599-8 (Version None)
Quarter: 2007Q3

REPORT INFORMATION
  Report Type: 
  Country: None (occurrence: None)
  Receive Date: 20070723
  Receipt Date: 20070723
  Transmission Date: 20080115
  Serious: Yes (Death)
  Sender: FDA-Public Use
  Company Number: None

PATIENT
  Age: 24 Year
  Sex: Male
  Weight: 84.8226 kg

DRUGS (1)
  1. METHADONE HCL [Suspect]
     Indication: ILL-DEFINED DISORDER

REACTIONS (3)
  - DRUG TOXICITY [None]
  - FEELING COLD [None]
  - SNORING [None]
